FAERS Safety Report 16515713 (Version 1)
Quarter: 2019Q3

REPORT INFORMATION
  Report Type: Report from Study
  Country: GR (occurrence: GR)
  Receive Date: 20190702
  Receipt Date: 20190702
  Transmission Date: 20191004
  Serious: Yes (Hospitalization)
  Sender: FDA-Public Use
  Company Number: GR-ASTRAZENECA-2019SE92186

PATIENT

DRUGS (2)
  1. ROSUVASTATIN. [Suspect]
     Active Substance: ROSUVASTATIN
     Route: 048
  2. WARFARIN [Interacting]
     Active Substance: WARFARIN
     Route: 065

REACTIONS (2)
  - Haemorrhagic stroke [Unknown]
  - Drug interaction [Unknown]
